FAERS Safety Report 23658790 (Version 1)
Quarter: 2024Q1

REPORT INFORMATION
  Report Type: Spontaneous
  Country: US (occurrence: None)
  Receive Date: 20240321
  Receipt Date: 20240321
  Transmission Date: 20240409
  Serious: No
  Sender: FDA-Public Use
  Company Number: None

PATIENT
  Age: 64 Year
  Sex: Female

DRUGS (6)
  1. RINVOQ [Suspect]
     Active Substance: UPADACITINIB
     Indication: Crohn^s disease
     Dosage: FREQUENCY : DAILY;?
     Route: 048
     Dates: start: 20231101
  2. VITAMIN B-12 1000MCG TABLETS [Concomitant]
  3. FISH OIL 1000MG CAPSULES [Concomitant]
  4. PANTOPRAZOLE [Concomitant]
     Active Substance: PANTOPRAZOLE
  5. XIIDRA 5% OP SOL SINGLES [Concomitant]
  6. AMITRIPTYINE 10MG TABLETS [Concomitant]

REACTIONS (1)
  - Acne [None]
